FAERS Safety Report 18964241 (Version 1)
Quarter: 2021Q1

REPORT INFORMATION
  Report Type: Spontaneous
  Country: BR (occurrence: BR)
  Receive Date: 20210303
  Receipt Date: 20210303
  Transmission Date: 20210420
  Serious: Yes (Other)
  Sender: FDA-Public Use
  Company Number: BR-AMERICAN REGENT INC-2021000512

PATIENT
  Sex: Male
  Weight: 82 kg

DRUGS (3)
  1. VENOFER [Suspect]
     Active Substance: IRON SUCROSE
     Indication: ANAEMIA
     Dosage: 100 MG, TWICE A WEEK
     Dates: start: 20210115, end: 20210129
  2. METFORMIN [Concomitant]
     Active Substance: METFORMIN HYDROCHLORIDE
     Indication: DIABETES MELLITUS
     Dosage: 850 UNKNOWN, 1 IN 1 D
     Route: 048
     Dates: start: 2016
  3. CLORANA [Concomitant]
     Active Substance: HYDROCHLOROTHIAZIDE
     Indication: HYPERTENSION
     Dosage: 25 MG, 1 IN 1 D
     Route: 048
     Dates: start: 2010

REACTIONS (6)
  - Fatigue [Unknown]
  - Dyspnoea [Unknown]
  - Therapy interrupted [Unknown]
  - Product availability issue [Unknown]
  - Dizziness [Unknown]
  - Prostate cancer [Unknown]

NARRATIVE: CASE EVENT DATE: 2021
